FAERS Safety Report 7345118-9 (Version None)
Quarter: 2011Q1

REPORT INFORMATION
  Report Type: 
  Country: None (occurrence: None)
  Receive Date: 20110310
  Receipt Date: 20110228
  Transmission Date: 20110831
  Serious: Yes (Death)
  Sender: FDA-Public Use
  Company Number: JP-ELI_LILLY_AND_COMPANY-JP201103000024

PATIENT
  Age: 55 Year
  Sex: Female

DRUGS (2)
  1. LODOPIN [Concomitant]
     Indication: SCHIZOPHRENIA
     Dosage: 400 MG, DAILY (1/D)
     Route: 048
  2. ZYPREXA [Suspect]
     Indication: SCHIZOPHRENIA
     Dosage: 5 MG, DAILY (1/D)
     Route: 048
     Dates: start: 20110202

REACTIONS (1)
  - CARDIAC FAILURE ACUTE [None]
